FAERS Safety Report 8336965-5 (Version None)
Quarter: 2012Q2

REPORT INFORMATION
  Report Type: 
  Country: None (occurrence: None)
  Receive Date: 20120504
  Receipt Date: 20120425
  Transmission Date: 20120825
  Serious: Yes (Hospitalization)
  Sender: FDA-Public Use
  Company Number: FR-SANOFI-AVENTIS-2012SA028939

PATIENT
  Age: 91 Year
  Sex: Female

DRUGS (5)
  1. ZOLPIDEM TARTRATE [Suspect]
     Route: 048
     Dates: start: 20120324, end: 20120327
  2. ROSUVASTATIN CALCIUM [Concomitant]
     Route: 048
  3. MEMANTINE HYDROCHLORIDE [Concomitant]
     Route: 048
  4. AMARYL [Suspect]
     Route: 048
     Dates: end: 20120327
  5. ATARAX [Concomitant]
     Route: 048

REACTIONS (4)
  - HYPOGLYCAEMIA [None]
  - FALL [None]
  - HEAD INJURY [None]
  - LOSS OF CONSCIOUSNESS [None]
